FAERS Safety Report 7596261-0 (Version None)
Quarter: 2011Q3

REPORT INFORMATION
  Report Type: 
  Country: None (occurrence: None)
  Receive Date: 20110707
  Receipt Date: 20110629
  Transmission Date: 20111222
  Serious: Yes (Death, Life-Threatening, Hospitalization)
  Sender: FDA-Public Use
  Company Number: GB-GENENTECH-320862

PATIENT
  Age: 64 Year
  Sex: Male

DRUGS (9)
  1. GEMCITABINE [Suspect]
     Indication: MANTLE CELL LYMPHOMA
     Dosage: 931 MG, SINGLE
     Route: 042
     Dates: start: 20100805
  2. DOMPERIDONE [Concomitant]
     Indication: PRODUCT USED FOR UNKNOWN INDICATION
     Dosage: UNK
     Dates: start: 20100804
  3. CISPLATIN [Suspect]
     Indication: MANTLE CELL LYMPHOMA
     Dosage: 94 MG, SINGLE
     Route: 042
     Dates: start: 20100805
  4. LANSOPRAZOLE [Concomitant]
     Indication: PRODUCT USED FOR UNKNOWN INDICATION
     Dosage: UNK
     Dates: start: 20100804
  5. RITUXAN [Suspect]
     Indication: MANTLE CELL LYMPHOMA
     Dosage: 700 MG, SINGLE
     Route: 042
     Dates: start: 20100805
  6. MORPHINE SULFATE [Concomitant]
     Indication: PRODUCT USED FOR UNKNOWN INDICATION
     Dosage: UNK
     Dates: start: 20100803
  7. INOTUZUMAB OZOGAMICIN [Suspect]
     Indication: MANTLE CELL LYMPHOMA
     Dosage: 1.5 MG, Q3W
     Route: 042
     Dates: start: 20100805
  8. DEXAMETHASONE ACETATE [Suspect]
     Indication: MANTLE CELL LYMPHOMA
     Dosage: 40 MG, UNK
     Route: 048
     Dates: start: 20100805
  9. ONDANSETRON [Concomitant]
     Indication: PRODUCT USED FOR UNKNOWN INDICATION
     Dosage: UNK
     Dates: start: 20100804

REACTIONS (2)
  - DISEASE PROGRESSION [None]
  - TUMOUR LYSIS SYNDROME [None]
